FAERS Safety Report 10096750 (Version 1)
Quarter: 2014Q2

REPORT INFORMATION
  Report Type: Spontaneous
  Country: US (occurrence: US)
  Receive Date: 20140422
  Receipt Date: 20140422
  Transmission Date: 20141212
  Serious: Yes (Other)
  Sender: FDA-Public Use
  Company Number: PHHY2014US046893

PATIENT
  Sex: 0

DRUGS (2)
  1. CARBOPLATIN [Suspect]
     Indication: MALIGNANT GLIOMA
  2. VINBLASTINE [Suspect]
     Indication: MALIGNANT GLIOMA

REACTIONS (4)
  - Inappropriate antidiuretic hormone secretion [Recovering/Resolving]
  - Weight decreased [Recovering/Resolving]
  - Malignant glioma [Unknown]
  - Malignant neoplasm progression [Unknown]
